FAERS Safety Report 21554061 (Version 1)
Quarter: 2022Q4

REPORT INFORMATION
  Report Type: Other
  Country: CA (occurrence: None)
  Receive Date: 20221104
  Receipt Date: 20221104
  Transmission Date: 20230112
  Serious: No
  Sender: FDA-Public Use
  Company Number: CA-ROCHE-2959658

PATIENT
  Age: 20 Year
  Sex: Male

DRUGS (1)
  1. OCREVUS [Suspect]
     Active Substance: OCRELIZUMAB
     Indication: Relapsing-remitting multiple sclerosis
     Dosage: 300 MG AT DAY 0 AND 14, THEN 600 MG EVERY 6 MONTH
     Route: 042
     Dates: start: 20211108

REACTIONS (5)
  - Nasopharyngitis [Not Recovered/Not Resolved]
  - COVID-19 [Recovered/Resolved]
  - Lymphadenopathy [Recovered/Resolved]
  - Lymph node pain [Recovered/Resolved]
  - Infusion related reaction [Unknown]

NARRATIVE: CASE EVENT DATE: 20211108
